FAERS Safety Report 19893301 (Version 1)
Quarter: 2021Q3

REPORT INFORMATION
  Report Type: Spontaneous
  Country: US (occurrence: US)
  Receive Date: 20210928
  Receipt Date: 20210928
  Transmission Date: 20211014
  Serious: No
  Sender: FDA-Public Use
  Company Number: US-SA-2021SA315359

PATIENT
  Age: 57 Year
  Sex: Female

DRUGS (3)
  1. BENADRYL 24 D [Concomitant]
     Active Substance: LORATADINE\PSEUDOEPHEDRINE SULFATE
  2. HELIOCARE [Concomitant]
  3. DUPIXENT [Suspect]
     Active Substance: DUPILUMAB
     Indication: DERMATITIS ATOPIC
     Dosage: 300 MG, QOW
     Dates: start: 202104

REACTIONS (2)
  - Skin exfoliation [Unknown]
  - Pruritus [Unknown]

NARRATIVE: CASE EVENT DATE: 2021
